FAERS Safety Report 5267336-6 (Version None)
Quarter: 2007Q1

REPORT INFORMATION
  Report Type: 
  Country: None (occurrence: None)
  Receive Date: 20070316
  Receipt Date: 20070302
  Transmission Date: 20070707
  Serious: Yes (Hospitalization)
  Sender: FDA-Public Use
  Company Number: US-AMGEN-US172941

PATIENT
  Sex: Male

DRUGS (12)
  1. ENBREL [Suspect]
     Indication: RHEUMATOID ARTHRITIS
     Route: 058
     Dates: start: 20030417
  2. PREDNISONE [Suspect]
     Indication: RHEUMATOID ARTHRITIS
     Route: 048
     Dates: start: 20051116
  3. PLAQUENIL [Suspect]
     Indication: RHEUMATOID ARTHRITIS
     Route: 048
     Dates: start: 20050701
  4. EVOXAC [Concomitant]
     Route: 065
     Dates: start: 20040401
  5. FLONASE [Concomitant]
     Route: 045
  6. DICLOFENAC SODIUM [Concomitant]
     Route: 048
     Dates: start: 20010101
  7. TOPROL-XL [Concomitant]
     Route: 048
     Dates: start: 20030101
  8. OMEPRAZOLE [Concomitant]
     Route: 065
     Dates: start: 20040101
  9. ALLEGRA [Concomitant]
     Route: 048
  10. HYDROCHLOROTHIAZIDE [Concomitant]
     Route: 048
  11. LISINOPRIL [Concomitant]
     Route: 048
  12. COZAAR [Concomitant]
     Route: 048

REACTIONS (3)
  - PLEURAL EFFUSION [None]
  - PNEUMONIA [None]
  - PRESYNCOPE [None]
